FAERS Safety Report 5109326-X (Version None)
Quarter: 2006Q3

REPORT INFORMATION
  Report Type: 
  Country: None (occurrence: None)
  Receive Date: 20060920
  Receipt Date: 20060918
  Transmission Date: 20061208
  Serious: Yes (Death, Hospitalization)
  Sender: FDA-Public Use
  Company Number: KE-GLAXOSMITHKLINE-B0438713A

PATIENT

DRUGS (3)
  1. COMBIVIR [Suspect]
     Indication: ANTIVIRAL PROPHYLAXIS
  2. NELFINAVIR [Suspect]
     Indication: ANTIVIRAL PROPHYLAXIS
  3. FOLATE [Concomitant]

REACTIONS (2)
  - PREMATURE BABY [None]
  - RESPIRATORY DISTRESS [None]
